FAERS Safety Report 4296262-4 (Version None)
Quarter: 2004Q1

REPORT INFORMATION
  Report Type: 
  Country: None (occurrence: None)
  Receive Date: 20040217
  Receipt Date: 20030915
  Transmission Date: 20041129
  Serious: No
  Sender: FDA-Public Use
  Company Number: US-GLAXOSMITHKLINE-A0428105A

PATIENT
  Sex: Male

DRUGS (2)
  1. LAMICTAL [Suspect]
     Route: 048
  2. WELLBUTRIN [Suspect]
     Route: 048

REACTIONS (2)
  - OROPHARYNGEAL SWELLING [None]
  - THROAT TIGHTNESS [None]
